FAERS Safety Report 21956428 (Version 1)
Quarter: 2023Q1

REPORT INFORMATION
  Report Type: Spontaneous
  Country: CA (occurrence: CA)
  Receive Date: 20230206
  Receipt Date: 20230206
  Transmission Date: 20230418
  Serious: Yes (Other)
  Sender: FDA-Public Use
  Company Number: None

PATIENT
  Age: 42 Year
  Sex: Male
  Weight: 50 kg

DRUGS (10)
  1. MYCOPHENOLATE MOFETIL [Suspect]
     Active Substance: MYCOPHENOLATE MOFETIL
     Indication: Product used for unknown indication
     Dosage: 1 EVERY 2 DAYS
  2. SOLIRIS [Suspect]
     Active Substance: ECULIZUMAB
     Indication: Atypical haemolytic uraemic syndrome
     Dosage: SOLUTION INTRAVENOUS, 1 EVERY 1 WEEKS, SINGLE USE, 300 MG/30ML
     Route: 042
  3. ATACAND [Concomitant]
     Active Substance: CANDESARTAN CILEXETIL
  4. BISOPROLOL [Concomitant]
     Active Substance: BISOPROLOL
  5. DOXAZOSIN [Concomitant]
     Active Substance: DOXAZOSIN MESYLATE
  6. INDAPAMIDE [Concomitant]
     Active Substance: INDAPAMIDE
  7. LASIX [Concomitant]
     Active Substance: FUROSEMIDE
  8. NIFEDIPINE [Concomitant]
     Active Substance: NIFEDIPINE
  9. PREDNISONE [Concomitant]
     Active Substance: PREDNISONE
  10. MYCOPHENOLATE MOFETIL [Suspect]
     Active Substance: MYCOPHENOLATE MOFETIL
     Indication: Product used for unknown indication

REACTIONS (18)
  - Abdominal distension [Not Recovered/Not Resolved]
  - Anaemia [Not Recovered/Not Resolved]
  - Blood pressure decreased [Not Recovered/Not Resolved]
  - Complications of transplanted kidney [Not Recovered/Not Resolved]
  - Decreased appetite [Not Recovered/Not Resolved]
  - Dizziness [Not Recovered/Not Resolved]
  - Dyslipidaemia [Not Recovered/Not Resolved]
  - Endoscopy upper gastrointestinal tract abnormal [Not Recovered/Not Resolved]
  - Faeces soft [Not Recovered/Not Resolved]
  - Haematochezia [Not Recovered/Not Resolved]
  - Hypertension [Not Recovered/Not Resolved]
  - Hyperuricaemia [Not Recovered/Not Resolved]
  - Laboratory test abnormal [Not Recovered/Not Resolved]
  - Malaise [Not Recovered/Not Resolved]
  - Melaena [Not Recovered/Not Resolved]
  - Metabolic acidosis [Not Recovered/Not Resolved]
  - Pallor [Not Recovered/Not Resolved]
  - Weight decreased [Not Recovered/Not Resolved]
